FAERS Safety Report 7487226-8 (Version None)
Quarter: 2011Q2

REPORT INFORMATION
  Report Type: 
  Country: None (occurrence: None)
  Receive Date: 20110518
  Receipt Date: 20110502
  Transmission Date: 20111010
  Serious: Yes (Hospitalization)
  Sender: FDA-Public Use
  Company Number: US-BAYER-2011-000424

PATIENT
  Age: 28 Year
  Sex: Female
  Weight: 77 kg

DRUGS (10)
  1. YASMIN [Suspect]
     Indication: ACNE
     Route: 048
  2. FOLIC ACID [Concomitant]
     Dosage: 400 MG, QD
     Dates: start: 20060101
  3. SYNTHROID [Concomitant]
     Dosage: 400 MCG/24HR, OW
     Route: 048
  4. PAXIL [Concomitant]
     Indication: PRODUCT USED FOR UNKNOWN INDICATION
     Dosage: 20 MG, QD
     Route: 048
  5. YAZ [Suspect]
     Indication: ACNE
     Route: 048
  6. VITAMIN B-12 [Concomitant]
     Dosage: 250 MG, QD
     Dates: start: 20060101
  7. DROSPIRENONE AND ETHINYL ESTRADIOL [Suspect]
     Indication: ACNE
     Route: 048
  8. IRON [IRON] [Concomitant]
     Dosage: UNK UNK, BID
     Dates: start: 20060101
  9. MULTI-VITAMINS [Concomitant]
     Dosage: UNK UNK, BID
  10. SYNTHROID [Concomitant]
     Indication: HYPOTHYROIDISM
     Dosage: 200 MCG/24HR, UNK
     Route: 048

REACTIONS (4)
  - PAIN [None]
  - GALLBLADDER DISORDER [None]
  - CHOLECYSTITIS CHRONIC [None]
  - INJURY [None]
